FAERS Safety Report 14978868 (Version 1)
Quarter: 2018Q2

REPORT INFORMATION
  Report Type: Spontaneous
  Country: PL (occurrence: PL)
  Receive Date: 20180606
  Receipt Date: 20180606
  Transmission Date: 20180711
  Serious: Yes (Life-Threatening)
  Sender: FDA-Public Use
  Company Number: PHHY2017PL203643

PATIENT
  Age: 51 Year
  Sex: Male
  Weight: 88 kg

DRUGS (1)
  1. OXALIPLATIN. [Suspect]
     Active Substance: OXALIPLATIN
     Indication: COLON CANCER
     Dosage: 85 MG/M2, UNK
     Route: 042

REACTIONS (6)
  - Swelling face [Recovered/Resolved]
  - Peripheral swelling [Recovered/Resolved]
  - Pruritus [Recovered/Resolved]
  - Hypersensitivity [Recovered/Resolved]
  - Swollen tongue [Recovered/Resolved]
  - Erythema [Recovered/Resolved]

NARRATIVE: CASE EVENT DATE: 20170228
